FAERS Safety Report 4396604-5 (Version None)
Quarter: 2004Q3

REPORT INFORMATION
  Report Type: 
  Country: None (occurrence: None)
  Receive Date: 20040713
  Receipt Date: 20040713
  Transmission Date: 20050211
  Serious: No
  Sender: FDA-Public Use
  Company Number: None

PATIENT
  Age: 77 Year
  Sex: Female
  Weight: 54.8852 kg

DRUGS (2)
  1. DIFLUCAN [Suspect]
     Indication: CANDIDIASIS
     Dosage: 200MG Q 24 HR INTRAVENOUS
     Route: 042
     Dates: start: 20040706, end: 20040709
  2. VALPROIC ACID [Concomitant]

REACTIONS (3)
  - ALANINE AMINOTRANSFERASE INCREASED [None]
  - ASPARTATE AMINOTRANSFERASE INCREASED [None]
  - BLOOD ALKALINE PHOSPHATASE INCREASED [None]
